FAERS Safety Report 8462001-6 (Version None)
Quarter: 2012Q2

REPORT INFORMATION
  Report Type: 
  Country: None (occurrence: None)
  Receive Date: 20120625
  Receipt Date: 20120615
  Transmission Date: 20120825
  Serious: Yes (Other)
  Sender: FDA-Public Use
  Company Number: US-JNJFOC-20120608847

PATIENT
  Sex: Female
  Weight: 63.5 kg

DRUGS (4)
  1. PREVACID [Suspect]
     Indication: PRODUCT USED FOR UNKNOWN INDICATION
     Route: 048
  2. REMICADE [Suspect]
     Indication: COLITIS ULCERATIVE
     Route: 042
     Dates: start: 20120419
  3. PREDNISONE TAB [Concomitant]
     Route: 048
     Dates: end: 20120608
  4. PREVACID [Suspect]
     Route: 048

REACTIONS (5)
  - ACNE PUSTULAR [None]
  - DIARRHOEA [None]
  - WEIGHT INCREASED [None]
  - CHEST PAIN [None]
  - GASTRITIS [None]
